FAERS Safety Report 8789656 (Version 1)
Quarter: 2012Q4

REPORT INFORMATION
  Report Type: Spontaneous
  Country: JP (occurrence: None)
  Receive Date: 20120906
  Receipt Date: 20120906
  Transmission Date: 20130627
  Serious: Yes (Other)
  Sender: FDA-Public Use
  Company Number: DSA_59247-2012

PATIENT

DRUGS (6)
  1. FLUOROURACIL (FLUOROURACIL) [Suspect]
     Indication: COLORECTAL CANCER METASTATIC
     Route: 040
  2. FLUOROURACIL (FLUOROURACIL) [Suspect]
     Indication: COLORECTAL CANCER METASTATIC
  3. CALCIUM FOLINATE [Suspect]
     Indication: COLORECTAL CANCER METASTATIC
     Dosage: (200 mg/m2 Every other week Intravenous (not otherwise specified))
     Route: 042
  4. IRINOTECAN [Suspect]
     Indication: COLORECTAL CANCER METASTATIC
     Dosage: (180 mg/m2; Every other week Intravenous (not otherwise specified))
     Route: 042
  5. SUNITINIB [Suspect]
     Indication: COLORECTAL CANCER METASTATIC
  6. SUNITINIB [Suspect]
     Indication: COLORECTAL CANCER METASTATIC
     Dosage: (37.5 mg; Daily; 4 weeks on, 2 weeks off Oral)
     Route: 048

REACTIONS (1)
  - Wound complication [None]
